FAERS Safety Report 13469273 (Version 3)
Quarter: 2017Q2

REPORT INFORMATION
  Report Type: Report from Study
  Country: DE (occurrence: DE)
  Receive Date: 20170421
  Receipt Date: 20170612
  Transmission Date: 20170830
  Serious: Yes (Hospitalization)
  Sender: FDA-Public Use
  Company Number: PHHO2017DE006754

PATIENT
  Age: 71 Year
  Sex: Female
  Weight: 56.6 kg

DRUGS (11)
  1. LEE011 [Suspect]
     Active Substance: RIBOCICLIB
     Indication: BREAST CANCER
     Dosage: 600 MG/ DAILY
     Route: 048
     Dates: start: 20161215, end: 20170406
  2. CELECOXIB. [Concomitant]
     Active Substance: CELECOXIB
     Indication: BONE PAIN
     Dosage: 200 MG, BID
     Route: 048
     Dates: start: 20161202
  3. BISOPROLOL [Concomitant]
     Active Substance: BISOPROLOL
     Indication: HYPERTENSION
     Dosage: 5 MG, ONCE
     Route: 048
     Dates: start: 20090630
  4. EPOETIN ALFA [Concomitant]
     Active Substance: ERYTHROPOIETIN
     Indication: ANAEMIA
     Dosage: 30000 IE/ QW
     Route: 058
     Dates: start: 20170406
  5. L-THYROXINE [Concomitant]
     Active Substance: LEVOTHYROXINE
     Indication: HYPOTHYROIDISM
     Dosage: 75 MG, ONCE
     Route: 048
     Dates: start: 20110630
  6. LOPERAMID [Concomitant]
     Active Substance: LOPERAMIDE
     Indication: DIARRHOEA
     Dosage: IF NECESSARY
     Route: 065
     Dates: start: 20170126
  7. TAVOR (LORAZEPAM) [Concomitant]
     Active Substance: LORAZEPAM
     Indication: TREMOR
     Dosage: 0.5 MG, ONCE
     Route: 048
     Dates: start: 20170126
  8. TINZAPARIN [Concomitant]
     Active Substance: TINZAPARIN
     Indication: THROMBOSIS
     Dosage: 0.5 MG, ONCE
     Route: 058
     Dates: start: 20170206
  9. CGS 20267 [Suspect]
     Active Substance: LETROZOLE
     Indication: BREAST CANCER
     Dosage: 2.5 MG/ DAILY
     Route: 048
     Dates: start: 20161215, end: 20170413
  10. IBANDRONAT ACTAVIS [Concomitant]
     Active Substance: IBANDRONATE SODIUM
     Indication: METASTASES TO BONE
     Dosage: 3 MG/ EVERY 3 WEEKS
     Route: 042
     Dates: start: 20161130
  11. PANTOPRAZOLE [Concomitant]
     Active Substance: PANTOPRAZOLE
     Indication: PROPHYLAXIS
     Dosage: 40 MG, ONCE
     Route: 048
     Dates: start: 20110630

REACTIONS (1)
  - Atrial fibrillation [Recovered/Resolved]

NARRATIVE: CASE EVENT DATE: 20170412
